FAERS Safety Report 20741027 (Version 1)
Quarter: 2022Q2

REPORT INFORMATION
  Report Type: Spontaneous
  Country: AR (occurrence: AR)
  Receive Date: 20220422
  Receipt Date: 20220422
  Transmission Date: 20220720
  Serious: Yes (Other)
  Sender: FDA-Public Use
  Company Number: AR-PFIZER INC-202200558900

PATIENT
  Age: 57 Year
  Sex: Female

DRUGS (1)
  1. ENBREL [Suspect]
     Active Substance: ETANERCEPT
     Indication: Psoriatic arthropathy
     Dosage: 50 MG, WEEKLY
     Dates: start: 20211124

REACTIONS (4)
  - Psoriatic arthropathy [Not Recovered/Not Resolved]
  - Product administration interrupted [Not Recovered/Not Resolved]
  - Device failure [Not Recovered/Not Resolved]
  - Device leakage [Not Recovered/Not Resolved]
